FAERS Safety Report 14031273 (Version 1)
Quarter: 2017Q4

REPORT INFORMATION
  Report Type: Spontaneous
  Country: US (occurrence: US)
  Receive Date: 20171003
  Receipt Date: 20171003
  Transmission Date: 20180321
  Serious: No
  Sender: FDA-Public Use
  Company Number: US-LNK INTERNATIONAL, INC.-2028474

PATIENT
  Sex: Female

DRUGS (4)
  1. ATORVASTATIN [Concomitant]
     Active Substance: ATORVASTATIN
  2. ESCITALOPRAM [Concomitant]
     Active Substance: ESCITALOPRAM OXALATE
  3. SEVERE CONGESTION AND COUGH/COLD AND FLU DAYTIME/NIGHTTIME/MAXIMUM STRENGTH [Suspect]
     Active Substance: ACETAMINOPHEN\DEXTROMETHORPHAN HYDROBROMIDE\DIPHENHYDRAMINE HYDROCHLORIDE\GUAIFENESIN\PHENYLEPHRINE HYDROCHLORIDE
     Indication: PARANASAL SINUS DISCOMFORT
  4. PANTOPRAZOLE [Concomitant]
     Active Substance: PANTOPRAZOLE

REACTIONS (3)
  - Blood pressure increased [None]
  - Product label issue [None]
  - Drug ineffective [None]
